FAERS Safety Report 5325089-7 (Version None)
Quarter: 2007Q2

REPORT INFORMATION
  Report Type: 
  Country: None (occurrence: None)
  Receive Date: 20070511
  Receipt Date: 20070511
  Transmission Date: 20071010
  Serious: Yes (Hospitalization)
  Sender: FDA-Public Use
  Company Number: None

PATIENT
  Age: 55 Year
  Sex: Female

DRUGS (2)
  1. CIPROFLOXACIN [Suspect]
     Indication: INFLUENZA
     Dosage: 500 MG BID PO
     Route: 048
     Dates: start: 20070507, end: 20070507
  2. CIPROFLOXACIN [Suspect]
     Indication: UPPER RESPIRATORY TRACT INFECTION
     Dosage: 500 MG BID PO
     Route: 048
     Dates: start: 20070507, end: 20070507

REACTIONS (3)
  - ANGIOEDEMA [None]
  - PAIN OF SKIN [None]
  - RASH [None]
